FAERS Safety Report 22396251 (Version 2)
Quarter: 2023Q2

REPORT INFORMATION
  Report Type: Spontaneous
  Country: US (occurrence: US)
  Receive Date: 20230601
  Receipt Date: 20230612
  Transmission Date: 20230722
  Serious: No
  Sender: FDA-Public Use
  Company Number: US-GILEAD-2023-0629960

PATIENT
  Sex: Male

DRUGS (1)
  1. LENACAPAVIR [Suspect]
     Active Substance: LENACAPAVIR
     Indication: HIV infection
     Dosage: UNK
     Route: 065
     Dates: start: 20230407

REACTIONS (11)
  - Nausea [Unknown]
  - Constipation [Unknown]
  - Injection site pain [Unknown]
  - Fatigue [Unknown]
  - Speech disorder [Unknown]
  - Dysphonia [Unknown]
  - Dysphonia [Unknown]
  - Dry mouth [Unknown]
  - Injection site reaction [Unknown]
  - Dry throat [Unknown]
  - Catarrh [Unknown]
